FAERS Safety Report 9526217 (Version 1)
Quarter: 2013Q3

REPORT INFORMATION
  Report Type: Spontaneous
  Country: FR (occurrence: FR)
  Receive Date: 20130916
  Receipt Date: 20130916
  Transmission Date: 20140515
  Serious: Yes (Hospitalization)
  Sender: FDA-Public Use
  Company Number: FR-SANOFI-AVENTIS-2013SA089125

PATIENT
  Age: 81 Year
  Sex: Male

DRUGS (10)
  1. OFLOCET [Suspect]
     Indication: SEPSIS
     Route: 048
     Dates: start: 20130621, end: 20130702
  2. TERCIAN [Suspect]
     Indication: PRODUCT USED FOR UNKNOWN INDICATION
     Route: 048
     Dates: start: 20130615, end: 20130629
  3. LOVENOX [Suspect]
     Indication: PRODUCT USED FOR UNKNOWN INDICATION
     Route: 058
     Dates: start: 20130612, end: 20130708
  4. CETIRIZINE [Suspect]
     Indication: PRODUCT USED FOR UNKNOWN INDICATION
     Route: 048
     Dates: start: 20130622, end: 20130705
  5. GENTAMICIN SULFATE [Suspect]
     Indication: SEPSIS
     Route: 042
     Dates: start: 20130616, end: 20130619
  6. DIFFU K [Suspect]
     Indication: PRODUCT USED FOR UNKNOWN INDICATION
     Route: 048
     Dates: start: 20130613, end: 20130620
  7. MOVICOL [Suspect]
     Indication: PRODUCT USED FOR UNKNOWN INDICATION
     Route: 065
     Dates: start: 20130617, end: 20130622
  8. OXYNORM [Suspect]
     Indication: PRODUCT USED FOR UNKNOWN INDICATION
     Route: 048
     Dates: start: 20130617, end: 20130622
  9. ORBENINE [Suspect]
     Indication: SEPSIS
     Dosage: STRENGTH: 1 G/5 ML
     Route: 042
     Dates: start: 20130616, end: 20130626
  10. ACUPAN [Suspect]
     Indication: PRODUCT USED FOR UNKNOWN INDICATION
     Route: 042
     Dates: start: 20130612, end: 20130620

REACTIONS (3)
  - Oedema peripheral [Recovered/Resolved]
  - Tendonitis [Recovering/Resolving]
  - Purpura [Recovered/Resolved]
